FAERS Safety Report 14341662 (Version 1)
Quarter: 2017Q4

REPORT INFORMATION
  Report Type: Spontaneous
  Country: US (occurrence: US)
  Receive Date: 20171229
  Receipt Date: 20171229
  Transmission Date: 20180321
  Serious: No
  Sender: FDA-Public Use
  Company Number: None

PATIENT
  Age: 70 Year
  Sex: Female

DRUGS (7)
  1. METOPROLOL. [Concomitant]
     Active Substance: METOPROLOL
  2. ESBRIET [Suspect]
     Active Substance: PIRFENIDONE
     Indication: IDIOPATHIC PULMONARY FIBROSIS
     Route: 048
     Dates: start: 20170810
  3. HYDROCODONE BITARTRATE AND ACETAMINOPHEN [Concomitant]
     Active Substance: ACETAMINOPHEN\HYDROCODONE BITARTRATE
  4. SOOLA [Concomitant]
  5. BENZONATE [Concomitant]
     Active Substance: BENZONATATE
  6. LEVOTHYROXINE. [Concomitant]
     Active Substance: LEVOTHYROXINE
  7. BUPROPH HCL [Concomitant]

REACTIONS (1)
  - Drug ineffective [None]

NARRATIVE: CASE EVENT DATE: 20171222
